FAERS Safety Report 6727529-5 (Version None)
Quarter: 2010Q2

REPORT INFORMATION
  Report Type: 
  Country: None (occurrence: None)
  Receive Date: 20100517
  Receipt Date: 20100503
  Transmission Date: 20101027
  Serious: Yes (Hospitalization, Other)
  Sender: FDA-Public Use
  Company Number: PHHY2010US29398

PATIENT
  Age: 49 Year
  Sex: Male

DRUGS (9)
  1. CLOZAPINE [Suspect]
     Dosage: 12.5 MG, QD
  2. CLOZAPINE [Suspect]
     Dosage: 25 MG, QD
  3. CLOZAPINE [Suspect]
     Dosage: 50 MG, QD
  4. CLOZAPINE [Suspect]
     Dosage: 150 MG, BID
  5. QUETIAPINE [Suspect]
     Dosage: 50 MG, QD
  6. QUETIAPINE [Suspect]
     Dosage: 600 MG, BID
  7. DIVALPROEX SODIUM [Suspect]
     Dosage: 1500 MG, BID
  8. MIRTAZAPINE [Suspect]
     Dosage: 30 MG, QD
  9. LEVOTHYROXINE SODIUM [Suspect]
     Dosage: 0.1 MG, QD

REACTIONS (20)
  - ATAXIA [None]
  - ATELECTASIS [None]
  - BACK PAIN [None]
  - BLOOD PRESSURE FLUCTUATION [None]
  - COGNITIVE DISORDER [None]
  - DEPRESSED LEVEL OF CONSCIOUSNESS [None]
  - EATING DISORDER [None]
  - FALL [None]
  - GAIT DISTURBANCE [None]
  - INCOHERENT [None]
  - LUNG INFILTRATION [None]
  - MYOKYMIA [None]
  - NEUROLEPTIC MALIGNANT SYNDROME [None]
  - ORTHOSTATIC HYPOTENSION [None]
  - PLEURAL EFFUSION [None]
  - PLEURAL FIBROSIS [None]
  - PYREXIA [None]
  - SEPSIS [None]
  - TACHYCARDIA [None]
  - TREMOR [None]
